FAERS Safety Report 10145563 (Version 1)
Quarter: 2014Q2

REPORT INFORMATION
  Report Type: Spontaneous
  Country: US (occurrence: US)
  Receive Date: 20140501
  Receipt Date: 20140501
  Transmission Date: 20141212
  Serious: Yes (Other)
  Sender: FDA-Public Use
  Company Number: US-TEVA-478294USA

PATIENT
  Sex: Female

DRUGS (1)
  1. COPAXONE [Suspect]

REACTIONS (6)
  - Multiple sclerosis relapse [Unknown]
  - Influenza like illness [Unknown]
  - White blood cell count decreased [Unknown]
  - Mood altered [Recovering/Resolving]
  - Inappropriate schedule of drug administration [Unknown]
  - Adverse event [Recovering/Resolving]
